FAERS Safety Report 6506138-7 (Version None)
Quarter: 2009Q4

REPORT INFORMATION
  Report Type: 
  Country: None (occurrence: None)
  Receive Date: 20091218
  Receipt Date: 20091211
  Transmission Date: 20100525
  Serious: Yes (Hospitalization, Other)
  Sender: FDA-Public Use
  Company Number: SE-ELI_LILLY_AND_COMPANY-SE200912002608

PATIENT
  Age: 59 Year
  Sex: Male

DRUGS (2)
  1. EXENATIDE [Suspect]
     Dosage: 10 UG, 2/D
     Dates: start: 20090209
  2. TROMBYL [Concomitant]
     Dosage: 75 MG, UNK

REACTIONS (2)
  - CEREBRAL INFARCTION [None]
  - MYOCARDIAL INFARCTION [None]
